FAERS Safety Report 9135547 (Version 1)
Quarter: 2013Q1

REPORT INFORMATION
  Report Type: Spontaneous
  Country: GB (occurrence: None)
  Receive Date: 20130221
  Receipt Date: 20130221
  Transmission Date: 20140127
  Serious: Yes (Death, Other)
  Sender: FDA-Public Use
  Company Number: 2013-02563

PATIENT
  Age: 9 Month
  Sex: Female
  Weight: 9 kg

DRUGS (7)
  1. LEVETIRACETAM (UNKNOWN) (LEVETIRACETAM) [Suspect]
     Indication: EPILEPSY
     Route: 048
     Dates: start: 20120709, end: 20121128
  2. PHENYTOIN (PHENYTOIN) [Suspect]
     Indication: STATUS EPILEPTICUS
     Dosage: 180MG OVER 20 MINUTES, INTRAVENOUS
     Dates: start: 20121128, end: 20121128
  3. MIDAZOLAM (MIDAZOLAM) [Suspect]
     Indication: CONVULSION
     Dosage: 2.5MG AT 5 MINUTES AND 15 MINUTES, BUCCAL
     Dates: start: 20121128, end: 20121128
  4. EPILIM (VALPROATE SODIUM) [Suspect]
     Indication: CONVULSION
     Route: 048
     Dates: start: 20120718, end: 20121128
  5. KEPPRA (LEVETIRACETAM) [Concomitant]
  6. PARACETAMOL (PARACETAMOL) [Concomitant]
  7. DIAZEPAM (DIAZEPAM) [Concomitant]

REACTIONS (3)
  - Cardiac arrest [None]
  - Respiratory acidosis [None]
  - Convulsion [None]
